FAERS Safety Report 15746511 (Version 1)
Quarter: 2018Q4

REPORT INFORMATION
  Report Type: Spontaneous
  Country: GB (occurrence: GB)
  Receive Date: 20181220
  Receipt Date: 20181220
  Transmission Date: 20190205
  Serious: Yes (Hospitalization)
  Sender: FDA-Public Use
  Company Number: GB-TEVA-2018-GB-989581

PATIENT
  Age: 98 Year
  Sex: Female
  Weight: 50 kg

DRUGS (17)
  1. OMEPRAZOLE. [Concomitant]
     Active Substance: OMEPRAZOLE
  2. ACETYLSALICYLIC ACID [Concomitant]
     Active Substance: ASPIRIN
  3. DULOXETINE. [Concomitant]
     Active Substance: DULOXETINE
  4. AMITRIPTYLINE [Concomitant]
     Active Substance: AMITRIPTYLINE
  5. SALBUTAMOL [Concomitant]
     Active Substance: ALBUTEROL
  6. ATORVASTATIN [Concomitant]
     Active Substance: ATORVASTATIN
  7. FUROSEMIDE. [Suspect]
     Active Substance: FUROSEMIDE
     Dosage: MORNING
     Route: 048
     Dates: start: 20180925
  8. LACTULOSE. [Concomitant]
     Active Substance: LACTULOSE
  9. TEMAZEPAM. [Concomitant]
     Active Substance: TEMAZEPAM
  10. COCODAMOL [Concomitant]
     Active Substance: ACETAMINOPHEN\CODEINE PHOSPHATE
  11. ALENDRONIC ACID [Concomitant]
     Active Substance: ALENDRONIC ACID
  12. ADCAL-D3 [Concomitant]
     Active Substance: CALCIUM CARBONATE\CHOLECALCIFEROL
  13. LEVOTHYROXINE. [Concomitant]
     Active Substance: LEVOTHYROXINE
  14. BISOPROLOL [Concomitant]
     Active Substance: BISOPROLOL
  15. DOCUSATE [Concomitant]
     Active Substance: DOCUSATE
  16. CLENIL MODULITE [Concomitant]
     Active Substance: BECLOMETHASONE DIPROPIONATE
  17. FUROSEMIDE. [Suspect]
     Active Substance: FUROSEMIDE
     Indication: OEDEMA PERIPHERAL
     Dosage: 40 MILLIGRAM DAILY; MORNING
     Route: 048
     Dates: end: 20180925

REACTIONS (7)
  - Fall [Recovered/Resolved with Sequelae]
  - Memory impairment [Unknown]
  - Incontinence [Unknown]
  - Orthostatic hypotension [Unknown]
  - Urinary tract infection [Unknown]
  - Urine output increased [Unknown]
  - Atrial fibrillation [Unknown]

NARRATIVE: CASE EVENT DATE: 20181122
